FAERS Safety Report 4485293-7 (Version None)
Quarter: 2004Q4

REPORT INFORMATION
  Report Type: 
  Country: None (occurrence: None)
  Receive Date: 20041022
  Receipt Date: 20041022
  Transmission Date: 20050328
  Serious: Yes (Death)
  Sender: FDA-Public Use
  Company Number: None

PATIENT
  Age: 30 Year
  Sex: Male
  Weight: 92.0802 kg

DRUGS (4)
  1. DAUNORUBICIN [Suspect]
     Indication: ACUTE MYELOID LEUKAEMIA
     Dosage: 90 MG/M2 IV
     Route: 042
     Dates: start: 20040930
  2. DAUNORUBICIN [Suspect]
     Indication: ACUTE MYELOID LEUKAEMIA
     Dosage: 90 MG/M2 IV
     Route: 042
     Dates: start: 20041001
  3. DAUNORUBICIN [Suspect]
     Indication: ACUTE MYELOID LEUKAEMIA
     Dosage: 90 MG/M2 IV
     Route: 042
     Dates: start: 20041002
  4. CYTARABINE [Suspect]
     Indication: ACUTE MYELOID LEUKAEMIA
     Dosage: 100 MG/M2 IV
     Route: 042
     Dates: start: 20040930, end: 20041006

REACTIONS (3)
  - CONDITION AGGRAVATED [None]
  - LUNG INFILTRATION [None]
  - RESPIRATORY FAILURE [None]
